FAERS Safety Report 22716546 (Version 4)
Quarter: 2023Q4

REPORT INFORMATION
  Report Type: Spontaneous
  Country: JP (occurrence: None)
  Receive Date: 20230718
  Receipt Date: 20231027
  Transmission Date: 20240110
  Serious: No
  Sender: FDA-Public Use
  Company Number: 2023A161495

PATIENT
  Age: 26981 Day
  Sex: Female
  Weight: 42 kg

DRUGS (3)
  1. LYNPARZA [Suspect]
     Active Substance: OLAPARIB
     Indication: Ovarian cancer
     Route: 048
     Dates: start: 20230501, end: 2023
  2. LYNPARZA [Suspect]
     Active Substance: OLAPARIB
     Indication: Ovarian cancer
     Route: 048
     Dates: start: 2023
  3. BEVACIZUMAB [Suspect]
     Active Substance: BEVACIZUMAB
     Indication: Ovarian cancer
     Dosage: DOSE UNKNOWN
     Route: 042

REACTIONS (3)
  - Neuropathy peripheral [Recovering/Resolving]
  - Product dose omission issue [Unknown]
  - Product size issue [Unknown]

NARRATIVE: CASE EVENT DATE: 20230625
